FAERS Safety Report 4551477-2 (Version None)
Quarter: 2005Q1

REPORT INFORMATION
  Report Type: 
  Country: None (occurrence: None)
  Receive Date: 20050110
  Receipt Date: 20041206
  Transmission Date: 20050727
  Serious: No
  Sender: FDA-Public Use
  Company Number: 9413

PATIENT
  Age: 55 Year
  Sex: Male

DRUGS (4)
  1. VINBLASTINE [Suspect]
     Indication: HODGKIN'S DISEASE
     Dosage: IV
     Route: 042
  2. DOXORUBICIN HCL [Concomitant]
  3. BLEOMYCIN [Concomitant]
  4. DACARBAZINE [Concomitant]

REACTIONS (2)
  - LIVER FUNCTION TEST ABNORMAL [None]
  - POLYNEUROPATHY [None]
